FAERS Safety Report 12227735 (Version 1)
Quarter: 2016Q2

REPORT INFORMATION
  Report Type: Spontaneous
  Country: US (occurrence: US)
  Receive Date: 20160401
  Receipt Date: 20160401
  Transmission Date: 20160815
  Serious: Yes (Other)
  Sender: FDA-Public Use
  Company Number: US-BEH-2016060780

PATIENT
  Sex: Female
  Weight: 52 kg

DRUGS (17)
  1. EPIPEN [Concomitant]
     Active Substance: EPINEPHRINE
  2. PROBIOTIC [Concomitant]
     Active Substance: PROBIOTICS NOS
  3. EVOXAC [Concomitant]
     Active Substance: CEVIMELINE HYDROCHLORIDE
  4. DIPHENHYDRAMINE. [Concomitant]
     Active Substance: DIPHENHYDRAMINE
  5. VALIUM [Concomitant]
     Active Substance: DIAZEPAM
  6. ACETAMINOPHEN. [Concomitant]
     Active Substance: ACETAMINOPHEN
  7. CELEBREX [Concomitant]
     Active Substance: CELECOXIB
  8. BIOTIN [Concomitant]
     Active Substance: BIOTIN
  9. CREON [Concomitant]
     Active Substance: PANCRELIPASE AMYLASE\PANCRELIPASE LIPASE\PANCRELIPASE PROTEASE
  10. DHEA [Concomitant]
     Active Substance: PRASTERONE
  11. ZYRTEC [Concomitant]
     Active Substance: CETIRIZINE HYDROCHLORIDE
  12. WELLBUTRIN [Concomitant]
     Active Substance: BUPROPION HYDROCHLORIDE
  13. VITAMIN D [Concomitant]
     Active Substance: CHOLECALCIFEROL
  14. CLONAZEPAM. [Concomitant]
     Active Substance: CLONAZEPAM
  15. HIZENTRA [Suspect]
     Active Substance: HUMAN IMMUNOGLOBULIN G
     Indication: IMMUNODEFICIENCY COMMON VARIABLE
     Route: 058
     Dates: start: 20130715
  16. LIDOCAINE. [Concomitant]
     Active Substance: LIDOCAINE
  17. CALCIUM [Concomitant]
     Active Substance: CALCIUM

REACTIONS (3)
  - Nasopharyngitis [Unknown]
  - Gastrointestinal bacterial infection [Unknown]
  - Oral bacterial infection [Unknown]
